FAERS Safety Report 20102187 (Version 1)
Quarter: 2021Q4

REPORT INFORMATION
  Report Type: Report from Study
  Country: US (occurrence: US)
  Receive Date: 20211123
  Receipt Date: 20211123
  Transmission Date: 20220303
  Serious: No
  Sender: FDA-Public Use
  Company Number: US-ABBVIE-21K-163-4165597-00

PATIENT
  Sex: Female

DRUGS (2)
  1. ELAGOLIX SODIUM\ESTRADIOL\NORETHINDRONE [Suspect]
     Active Substance: ELAGOLIX SODIUM\ESTRADIOL\NORETHINDRONE
     Indication: Product used for unknown indication
     Route: 048
  2. ELAGOLIX [Suspect]
     Active Substance: ELAGOLIX
     Indication: Product used for unknown indication
     Route: 048

REACTIONS (2)
  - Incontinence [Unknown]
  - Alopecia [Unknown]
